FAERS Safety Report 20071124 (Version 2)
Quarter: 2021Q4

REPORT INFORMATION
  Report Type: Spontaneous
  Country: US (occurrence: US)
  Receive Date: 20211115
  Receipt Date: 20211116
  Transmission Date: 20220303
  Serious: No
  Sender: FDA-Public Use
  Company Number: US-CELGENE-USA-20211101000

PATIENT
  Sex: Male

DRUGS (2)
  1. INREBIC [Suspect]
     Active Substance: FEDRATINIB HYDROCHLORIDE
     Indication: Myelofibrosis
     Dosage: 400 MILLIGRAM
     Route: 048
     Dates: start: 20210412
  2. DEFEROXAMINE MESYLATE [Concomitant]
     Active Substance: DEFEROXAMINE MESYLATE
     Indication: Blood iron decreased
     Route: 041

REACTIONS (4)
  - Vitamin B1 deficiency [Unknown]
  - Asthenia [Unknown]
  - Diarrhoea [Unknown]
  - Blood iron increased [Unknown]

NARRATIVE: CASE EVENT DATE: 20210101
